FAERS Safety Report 15666215 (Version 6)
Quarter: 2019Q4

REPORT INFORMATION
  Report Type: Spontaneous
  Country: FR (occurrence: FR)
  Receive Date: 20181128
  Receipt Date: 20191008
  Transmission Date: 20200122
  Serious: Yes (Death, Life-Threatening, Hospitalization, Other)
  Sender: FDA-Public Use
  Company Number: FR-PFIZER INC-2018487566

PATIENT
  Age: 58 Year
  Sex: Male

DRUGS (3)
  1. OXALIPLATIN. [Suspect]
     Active Substance: OXALIPLATIN
     Indication: LINITIS PLASTICA
     Dosage: UNK UNK, CYCLIC (DAY 8 OF CYCLE 1)
  2. FLUOROURACIL. [Suspect]
     Active Substance: FLUOROURACIL
     Indication: LINITIS PLASTICA
     Dosage: UNK UNK, CYCLIC (DAY 8 OF CYCLE 1)
  3. CALCIUM FOLINATE [Suspect]
     Active Substance: LEUCOVORIN CALCIUM
     Indication: LINITIS PLASTICA
     Dosage: UNK UNK, CYCLIC (DAY 8 OF CYCLE 1)

REACTIONS (2)
  - Septic shock [Fatal]
  - Febrile neutropenia [Fatal]
